FAERS Safety Report 8556048-9 (Version None)
Quarter: 2012Q3

REPORT INFORMATION
  Report Type: 
  Country: None (occurrence: None)
  Receive Date: 20120719
  Receipt Date: 20120703
  Transmission Date: 20120928
  Serious: Yes (Other)
  Sender: FDA-Public Use
  Company Number: E2B_00000283

PATIENT
  Age: 59 Year
  Sex: Female
  Weight: 113.3993 kg

DRUGS (7)
  1. METOPROLOL SUCCINATE (TOPROL) [Concomitant]
  2. DYAZIDE [Concomitant]
  3. REPAGLINIDE (PRANDIN) [Concomitant]
  4. LISINOPRIL [Suspect]
     Indication: PROPHYLAXIS
     Dosage: 10 MG (10 MG, 1 IN 1 D), PER ORAL
     Route: 048
     Dates: start: 20090101, end: 20120619
  5. LISINOPRIL [Suspect]
     Indication: RENAL DISORDER
     Dosage: 10 MG (10 MG, 1 IN 1 D), PER ORAL
     Route: 048
     Dates: start: 20090101, end: 20120619
  6. HUMULIN R [Concomitant]
  7. APIDRA [Concomitant]

REACTIONS (1)
  - THROAT TIGHTNESS [None]
